FAERS Safety Report 12896546 (Version 2)
Quarter: 2016Q4

REPORT INFORMATION
  Report Type: Spontaneous
  Country: US (occurrence: US)
  Receive Date: 20161031
  Receipt Date: 20161214
  Transmission Date: 20170207
  Serious: No
  Sender: FDA-Public Use
  Company Number: US-009507513-1610USA013738

PATIENT
  Age: 75 Year
  Sex: Female

DRUGS (3)
  1. RAGWITEK [Suspect]
     Active Substance: AMBROSIA ARTEMISIIFOLIA POLLEN
     Indication: HYPERSENSITIVITY
  2. RAGWITEK [Suspect]
     Active Substance: AMBROSIA ARTEMISIIFOLIA POLLEN
     Indication: SEASONAL ALLERGY
     Dosage: 1 TABLET OF: 12 AMB A 1-UNIT, DAILY, QD,
     Route: 060
     Dates: start: 20161010, end: 20161012
  3. BENADRYL [Suspect]
     Active Substance: DIPHENHYDRAMINE HYDROCHLORIDE
     Indication: RASH
     Dosage: UNK, Q8H X 2D
     Dates: start: 201610, end: 201610

REACTIONS (4)
  - Rash generalised [Recovered/Resolved]
  - Pruritus [Unknown]
  - Dyspnoea [Recovered/Resolved]
  - Eye swelling [Unknown]

NARRATIVE: CASE EVENT DATE: 201610
